FAERS Safety Report 13468331 (Version 2)
Quarter: 2017Q2

REPORT INFORMATION
  Report Type: Report from Study
  Country: US (occurrence: US)
  Receive Date: 20170421
  Receipt Date: 20170426
  Transmission Date: 20170830
  Serious: Yes (Hospitalization, Other)
  Sender: FDA-Public Use
  Company Number: US-GILEAD-2017-0256167

PATIENT
  Age: 62 Year
  Sex: Female
  Weight: 85 kg

DRUGS (1)
  1. AMBRISENTAN [Suspect]
     Active Substance: AMBRISENTAN
     Indication: PULMONARY HYPERTENSION
     Dosage: 10 MG, QD
     Route: 065
     Dates: start: 20161101

REACTIONS (8)
  - Feeding disorder [Recovered/Resolved]
  - Ventricular tachycardia [Recovered/Resolved]
  - Drug dose omission [Recovered/Resolved]
  - Supraventricular tachycardia [Recovered/Resolved]
  - Respiration abnormal [Recovered/Resolved]
  - Gastric disorder [Unknown]
  - Drug dose omission [Unknown]
  - Diarrhoea [Unknown]

NARRATIVE: CASE EVENT DATE: 20170228
